FAERS Safety Report 24790088 (Version 1)
Quarter: 2024Q4

REPORT INFORMATION
  Report Type: Spontaneous
  Country: US (occurrence: US)
  Receive Date: 20241230
  Receipt Date: 20241230
  Transmission Date: 20250114
  Serious: Yes (Death, Hospitalization, Other)
  Sender: SANOFI AVENTIS
  Company Number: US-SA-200022681GDDC

PATIENT
  Age: 76 Year
  Sex: Female

DRUGS (1)
  1. LOVENOX [Suspect]
     Active Substance: ENOXAPARIN SODIUM
     Indication: Thrombosis prophylaxis
     Dosage: 30 MG,BID
     Route: 058

REACTIONS (4)
  - Abdominal wall haematoma [Fatal]
  - Abdominal pain lower [Fatal]
  - Hyperkalaemia [Fatal]
  - Arrhythmia [Fatal]
